FAERS Safety Report 5381595-0 (Version None)
Quarter: 2007Q3

REPORT INFORMATION
  Report Type: 
  Country: None (occurrence: None)
  Receive Date: 20070709
  Receipt Date: 20070629
  Transmission Date: 20080115
  Serious: Yes (Hospitalization)
  Sender: FDA-Public Use
  Company Number: HQWYE862029JUN07

PATIENT
  Sex: Male
  Weight: 108 kg

DRUGS (6)
  1. RAPAMUNE [Suspect]
     Indication: PROPHYLAXIS AGAINST TRANSPLANT REJECTION
     Route: 048
     Dates: start: 20060928
  2. PROGRAF [Concomitant]
     Dosage: UNKNOWN
     Dates: end: 20070302
  3. PROGRAF [Concomitant]
     Dates: start: 20070303
  4. INSULIN [Concomitant]
     Indication: TYPE 1 DIABETES MELLITUS
  5. URSO FALK [Concomitant]
     Indication: BILE OUTPUT
     Dosage: UNKNOWN
     Dates: start: 20060831
  6. PANTOZOL [Concomitant]
     Indication: PROPHYLAXIS AGAINST GASTROINTESTINAL ULCER
     Dosage: UNKNOWN
     Dates: start: 20060831

REACTIONS (1)
  - LIVER TRANSPLANT REJECTION [None]
